FAERS Safety Report 16994683 (Version 2)
Quarter: 2025Q3

REPORT INFORMATION
  Report Type: Spontaneous
  Country: CA (occurrence: CA)
  Receive Date: 20191105
  Receipt Date: 20250915
  Transmission Date: 20251021
  Serious: Yes (Death, Other)
  Sender: MYLAN
  Company Number: CA-PFIZER INC-2019471419

PATIENT
  Age: 60 Year
  Sex: Male

DRUGS (20)
  1. GABAPENTIN [Suspect]
     Active Substance: GABAPENTIN
     Indication: Musculoskeletal pain
  2. GABAPENTIN [Suspect]
     Active Substance: GABAPENTIN
     Indication: Arthralgia
  3. GABAPENTIN [Suspect]
     Active Substance: GABAPENTIN
     Indication: Pain management
  4. BACLOFEN [Suspect]
     Active Substance: BACLOFEN
     Indication: Musculoskeletal pain
  5. BACLOFEN [Suspect]
     Active Substance: BACLOFEN
     Indication: Arthralgia
  6. BACLOFEN [Suspect]
     Active Substance: BACLOFEN
     Indication: Pain management
  7. KETAMINE HYDROCHLORIDE [Suspect]
     Active Substance: KETAMINE HYDROCHLORIDE
     Indication: Musculoskeletal pain
  8. METOCLOPRAMIDE [Suspect]
     Active Substance: METOCLOPRAMIDE
     Indication: Musculoskeletal pain
  9. METOCLOPRAMIDE [Suspect]
     Active Substance: METOCLOPRAMIDE
     Indication: Arthralgia
  10. METOCLOPRAMIDE [Suspect]
     Active Substance: METOCLOPRAMIDE
     Indication: Pain management
  11. NORTRIPTYLINE [Suspect]
     Active Substance: NORTRIPTYLINE
     Indication: Musculoskeletal pain
  12. NORTRIPTYLINE HYDROCHLORIDE [Suspect]
     Active Substance: NORTRIPTYLINE HYDROCHLORIDE
     Indication: Musculoskeletal pain
  13. NORTRIPTYLINE HYDROCHLORIDE [Suspect]
     Active Substance: NORTRIPTYLINE HYDROCHLORIDE
     Indication: Arthralgia
  14. NORTRIPTYLINE HYDROCHLORIDE [Suspect]
     Active Substance: NORTRIPTYLINE HYDROCHLORIDE
     Indication: Pain management
  15. KETAMINE [Suspect]
     Active Substance: KETAMINE
     Indication: Musculoskeletal pain
  16. KETAMINE [Suspect]
     Active Substance: KETAMINE
     Indication: Arthralgia
  17. KETAMINE [Suspect]
     Active Substance: KETAMINE
     Indication: Pain management
  18. MORPHINE [Suspect]
     Active Substance: MORPHINE
     Indication: Musculoskeletal pain
  19. MORPHINE [Suspect]
     Active Substance: MORPHINE
     Indication: Arthralgia
  20. MORPHINE [Suspect]
     Active Substance: MORPHINE
     Indication: Pain management

REACTIONS (5)
  - Treatment failure [Fatal]
  - Delirium [Recovered/Resolved]
  - Sedation [Recovered/Resolved]
  - Drug ineffective [Recovered/Resolved]
  - Off label use [Recovered/Resolved]
